FAERS Safety Report 13961635 (Version 7)
Quarter: 2018Q3

REPORT INFORMATION
  Report Type: Report from Study
  Country: CO (occurrence: CO)
  Receive Date: 20170912
  Receipt Date: 20180805
  Transmission Date: 20181010
  Serious: Yes (Hospitalization)
  Sender: FDA-Public Use
  Company Number: PHHY2017CO116434

PATIENT
  Age: 64 Year
  Sex: Female
  Weight: 50 kg

DRUGS (4)
  1. CICLOSPORIN [Suspect]
     Active Substance: CYCLOSPORINE
     Indication: PRODUCT USED FOR UNKNOWN INDICATION
     Dosage: UNK
     Route: 065
  2. REVOLADE [Suspect]
     Active Substance: ELTROMBOPAG
     Indication: IMMUNE THROMBOCYTOPENIC PURPURA
     Dosage: 75 MG, QD
     Route: 048
     Dates: start: 20170511
  3. REVOLADE [Suspect]
     Active Substance: ELTROMBOPAG
     Dosage: 6 DF (6 TABLETS OF 25 MG), QD
     Route: 048
  4. REVOLADE [Suspect]
     Active Substance: ELTROMBOPAG
     Dosage: 25 MG, TID
     Route: 048
     Dates: start: 20170516, end: 201707

REACTIONS (13)
  - Platelet count decreased [Unknown]
  - Phlebitis [Unknown]
  - Petechiae [Unknown]
  - Incorrect dose administered [Unknown]
  - Thrombocytopenic purpura [Unknown]
  - Bacteraemia [Unknown]
  - Arthralgia [Unknown]
  - Psychiatric symptom [Unknown]
  - Malaise [Unknown]
  - Haemoglobin decreased [Unknown]
  - Weight decreased [Unknown]
  - Contusion [Unknown]
  - Dizziness [Unknown]

NARRATIVE: CASE EVENT DATE: 20170727
